FAERS Safety Report 11883840 (Version 2)
Quarter: 2016Q1

REPORT INFORMATION
  Report Type: Spontaneous
  Country: IT (occurrence: IT)
  Receive Date: 20160101
  Receipt Date: 20160223
  Transmission Date: 20160526
  Serious: Yes (Hospitalization, Other)
  Sender: FDA-Public Use
  Company Number: IT-ASTRAZENECA-2015SF31283

PATIENT
  Age: 19799 Day
  Sex: Female

DRUGS (3)
  1. METFORMIN [Suspect]
     Active Substance: METFORMIN HYDROCHLORIDE
     Indication: TYPE 2 DIABETES MELLITUS
     Route: 048
     Dates: start: 20150416, end: 20151113
  2. INSULIN GLARGINE [Concomitant]
     Active Substance: INSULIN GLARGINE
     Dates: start: 201504
  3. DAPAGLIFLOZIN [Suspect]
     Active Substance: DAPAGLIFLOZIN
     Indication: TYPE 2 DIABETES MELLITUS
     Route: 048
     Dates: start: 20150416, end: 20151113

REACTIONS (9)
  - Diabetes mellitus inadequate control [Unknown]
  - Pyelonephritis acute [Recovered/Resolved]
  - Hypokalaemia [Unknown]
  - Fluid intake reduced [Unknown]
  - Lung infection [Unknown]
  - Klebsiella bacteraemia [Unknown]
  - Metabolic acidosis [Unknown]
  - Renal tubular disorder [Unknown]
  - Gastrointestinal motility disorder [Unknown]

NARRATIVE: CASE EVENT DATE: 20151114
